FAERS Safety Report 24004994 (Version 1)
Quarter: 2024Q2

REPORT INFORMATION
  Report Type: Spontaneous
  Country: GB (occurrence: GB)
  Receive Date: 20240624
  Receipt Date: 20240624
  Transmission Date: 20240716
  Serious: Yes (Other)
  Sender: FDA-Public Use
  Company Number: GB-MLMSERVICE-20240402-PI004734-00190-1

PATIENT
  Sex: Male

DRUGS (11)
  1. LAMOTRIGINE [Suspect]
     Active Substance: LAMOTRIGINE
     Indication: Epilepsy
     Dosage: BETWEEN DAY 5 AND 6
  2. LAMOTRIGINE [Suspect]
     Active Substance: LAMOTRIGINE
     Dosage: DAY 1 FROM PRESENTATION
     Route: 065
  3. LAMOTRIGINE [Suspect]
     Active Substance: LAMOTRIGINE
     Dosage: BETWEEN DAY 2 AND 3
     Route: 065
  4. LAMOTRIGINE [Suspect]
     Active Substance: LAMOTRIGINE
     Dosage: DAY 0 FROM PRESENTATION
     Route: 065
  5. LAMOTRIGINE [Suspect]
     Active Substance: LAMOTRIGINE
     Dosage: 5 YR 3MONTHS
     Route: 065
  6. LAMOTRIGINE [Suspect]
     Active Substance: LAMOTRIGINE
     Dosage: UNK
  7. LEVETIRACETAM [Suspect]
     Active Substance: LEVETIRACETAM
     Dosage: 1000 MILLIGRAM, QD
     Route: 065
  8. LEVETIRACETAM [Suspect]
     Active Substance: LEVETIRACETAM
     Indication: Epilepsy
     Dosage: BETWEEN DAY 5 AND 6
     Route: 065
  9. LEVETIRACETAM [Suspect]
     Active Substance: LEVETIRACETAM
     Dosage: DAY 1 FROM PRESENTATION
     Route: 065
  10. LEVETIRACETAM [Suspect]
     Active Substance: LEVETIRACETAM
     Dosage: BETWEEN DAY 2 AND 3
     Route: 065
  11. LEVETIRACETAM [Suspect]
     Active Substance: LEVETIRACETAM
     Dosage: REDUCED DOSE; ON DAY 0
     Route: 065

REACTIONS (1)
  - Toxic optic neuropathy [Recovered/Resolved]
